FAERS Safety Report 12364139 (Version 1)
Quarter: 2016Q2

REPORT INFORMATION
  Report Type: Spontaneous
  Country: US (occurrence: US)
  Receive Date: 20160513
  Receipt Date: 20160513
  Transmission Date: 20160815
  Serious: Yes (Other)
  Sender: FDA-Public Use
  Company Number: US-MDT-ADR-2015-02295

PATIENT
  Age: 75 Year
  Sex: Female

DRUGS (2)
  1. COMPOUNDED BACLOFEN [Suspect]
     Active Substance: BACLOFEN
     Dosage: 165.8MCG/DAY
     Route: 037
  2. COMPOUNDED BACLOFEN [Suspect]
     Active Substance: BACLOFEN
     Dosage: 138.2MCG/DAY
     Route: 037

REACTIONS (8)
  - Clonus [Unknown]
  - Blood pressure increased [Recovered/Resolved]
  - Tachycardia [Recovered/Resolved]
  - Drug withdrawal syndrome [Unknown]
  - Hypotonia [Unknown]
  - Muscle spasms [Unknown]
  - Muscle spasticity [Recovered/Resolved]
  - Implant site extravasation [Unknown]

NARRATIVE: CASE EVENT DATE: 201511
